FAERS Safety Report 12721360 (Version 1)
Quarter: 2016Q3

REPORT INFORMATION
  Report Type: Other
  Country: TW (occurrence: TW)
  Receive Date: 20160907
  Receipt Date: 20160907
  Transmission Date: 20161109
  Serious: Yes (Death, Hospitalization)
  Sender: FDA-Public Use
  Company Number: TW-UNITED THERAPEUTICS-UNT-2014-002944

PATIENT
  Age: 34 Year
  Sex: Male

DRUGS (2)
  1. REMODULIN [Suspect]
     Active Substance: TREPROSTINIL
     Indication: PULMONARY ARTERIAL HYPERTENSION
     Dosage: 0.002 ?G/KG, CONTINUING
     Route: 058
     Dates: start: 20140516
  2. REMODULIN [Suspect]
     Active Substance: TREPROSTINIL
     Dosage: 0.025 ?G/KG, CONTINUING, PUMP RATE 9.3 U/HR
     Route: 058
     Dates: start: 20140516, end: 20140618

REACTIONS (4)
  - Dyspnoea [Fatal]
  - Pulmonary arterial hypertension [Fatal]
  - Pneumonia [Fatal]
  - Right ventricular failure [Fatal]

NARRATIVE: CASE EVENT DATE: 2014
